FAERS Safety Report 6752788-2 (Version None)
Quarter: 2010Q2

REPORT INFORMATION
  Report Type: 
  Country: None (occurrence: None)
  Receive Date: 20100602
  Receipt Date: 20100602
  Transmission Date: 20101027
  Serious: Yes (Hospitalization)
  Sender: FDA-Public Use
  Company Number: None

PATIENT
  Age: 77 Year
  Sex: Female
  Weight: 97 kg

DRUGS (14)
  1. ENALAPRIL MALEATE [Suspect]
     Indication: HYPERTENSION
     Dosage: 5MG QD PO
     Route: 048
  2. DILANTIN [Concomitant]
  3. POTASSIUM CHLORIDE [Concomitant]
  4. PHENOBARBITAL [Concomitant]
  5. LASIX [Concomitant]
  6. ADVAIR DISKUS 100/50 [Concomitant]
  7. CALTRATE + VITAMIN D [Concomitant]
  8. CENTRUM SILVER [Concomitant]
  9. DIGOXIN [Concomitant]
  10. LEXAPRO [Concomitant]
  11. FERRO SULFATE [Concomitant]
  12. ASPIRIN [Concomitant]
  13. PYLERA [Concomitant]
  14. OMEPRAZOLE [Concomitant]

REACTIONS (2)
  - DYSPNOEA [None]
  - SWOLLEN TONGUE [None]
